FAERS Safety Report 6181256-4 (Version None)
Quarter: 2009Q2

REPORT INFORMATION
  Report Type: 
  Country: None (occurrence: None)
  Receive Date: 20090506
  Receipt Date: 20090428
  Transmission Date: 20091009
  Serious: Yes (Hospitalization)
  Sender: FDA-Public Use
  Company Number: ES-BRISTOL-MYERS SQUIBB COMPANY-14583108

PATIENT
  Age: 64 Year

DRUGS (4)
  1. CETUXIMAB [Suspect]
     Indication: COLON CANCER
     Dosage: STRENGTH- 5MG/ML. RECENT INFUSION ON 17SEP07
     Route: 042
     Dates: start: 20070326, end: 20070917
  2. OXALIPLATIN [Suspect]
     Indication: COLON CANCER
     Dosage: RECENT INFUSION ON 10SEP07
     Route: 042
     Dates: start: 20070326, end: 20070910
  3. FLUOROURACIL [Suspect]
     Indication: COLON CANCER
     Dosage: RECENT INFUSION ON 11SEP07
     Route: 042
     Dates: start: 20070326, end: 20070911
  4. FOLINIC ACID [Suspect]
     Indication: COLON CANCER
     Dosage: RECENT INFUSION ON 11SEP07
     Route: 042
     Dates: start: 20070326, end: 20070911

REACTIONS (2)
  - ABDOMINAL ABSCESS [None]
  - FISTULA [None]
